FAERS Safety Report 20039390 (Version 1)
Quarter: 2021Q4

REPORT INFORMATION
  Report Type: Spontaneous
  Country: JP (occurrence: JP)
  Receive Date: 20211105
  Receipt Date: 20211105
  Transmission Date: 20220303
  Serious: Yes (Hospitalization, Other)
  Sender: FDA-Public Use
  Company Number: JP-MSD-M2021-05225

PATIENT
  Age: 67 Year
  Sex: Male
  Weight: 58 kg

DRUGS (1)
  1. KEYTRUDA [Suspect]
     Active Substance: PEMBROLIZUMAB
     Indication: Non-small cell lung cancer stage IV
     Dosage: 200 MILLIGRAM, EVERY 4 WEEKS
     Route: 041
     Dates: start: 20170327, end: 20201223

REACTIONS (22)
  - Malignant neoplasm progression [Unknown]
  - Blood creatine phosphokinase increased [Unknown]
  - Sepsis [Unknown]
  - Enterocolitis bacterial [Unknown]
  - Evans syndrome [Unknown]
  - Retinal tear [Unknown]
  - Immune thrombocytopenia [Recovered/Resolved]
  - Immune-mediated enterocolitis [Recovered/Resolved]
  - Pyrexia [Unknown]
  - Dehydration [Unknown]
  - Asthenia [Unknown]
  - Immune-mediated renal disorder [Unknown]
  - Immune-mediated hepatic disorder [Unknown]
  - Autoimmune haemolytic anaemia [Unknown]
  - Haemophagocytic lymphohistiocytosis [Unknown]
  - Normocytic anaemia [Unknown]
  - Blood pressure decreased [Unknown]
  - Diarrhoea [Unknown]
  - Pain [Unknown]
  - Pain in extremity [Unknown]
  - Hypertension [Unknown]
  - Off label use [Unknown]

NARRATIVE: CASE EVENT DATE: 20170327
